FAERS Safety Report 13068008 (Version 1)
Quarter: 2016Q4

REPORT INFORMATION
  Report Type: Spontaneous
  Country: US (occurrence: US)
  Receive Date: 20161227
  Receipt Date: 20161227
  Transmission Date: 20170207
  Serious: Yes (Death)
  Sender: FDA-Public Use
  Company Number: None

PATIENT
  Age: 24 Year
  Sex: Male

DRUGS (1)
  1. ESBRIET [Suspect]
     Active Substance: PIRFENIDONE
     Indication: ORGANISING PNEUMONIA
     Route: 048
     Dates: start: 20161214

REACTIONS (2)
  - Death [None]
  - Off label use [None]

NARRATIVE: CASE EVENT DATE: 20161226
